FAERS Safety Report 11344888 (Version 1)
Quarter: 2015Q3

REPORT INFORMATION
  Report Type: Spontaneous
  Country: US (occurrence: US)
  Receive Date: 20150806
  Receipt Date: 20150806
  Transmission Date: 20151125
  Serious: No
  Sender: FDA-Public Use
  Company Number: US-GLAXOSMITHKLINE-US2015111901

PATIENT
  Sex: Female

DRUGS (1)
  1. ACITRETIN TABLET [Suspect]
     Active Substance: ACITRETIN
     Indication: PSORIASIS

REACTIONS (5)
  - Pruritus [Not Recovered/Not Resolved]
  - Intentional product use issue [Unknown]
  - Skin exfoliation [Not Recovered/Not Resolved]
  - Skin atrophy [Not Recovered/Not Resolved]
  - Madarosis [Not Recovered/Not Resolved]
